FAERS Safety Report 21823565 (Version 1)
Quarter: 2023Q1

REPORT INFORMATION
  Report Type: Spontaneous
  Country: US (occurrence: US)
  Receive Date: 20230105
  Receipt Date: 20230105
  Transmission Date: 20230417
  Serious: No
  Sender: FDA-Public Use
  Company Number: US-Blueprint Medicines Corporation-684

PATIENT
  Sex: Male

DRUGS (3)
  1. AYVAKIT [Suspect]
     Active Substance: AVAPRITINIB
     Indication: Brain neoplasm malignant
     Route: 065
  2. FOLIC ACID [Concomitant]
     Active Substance: FOLIC ACID
     Indication: Product used for unknown indication
     Route: 065
  3. VITAMIN B12 [Concomitant]
     Active Substance: CYANOCOBALAMIN
     Indication: Product used for unknown indication
     Route: 065

REACTIONS (10)
  - Amnesia [Unknown]
  - Microcytic anaemia [Recovering/Resolving]
  - Cognitive disorder [Unknown]
  - Platelet count decreased [Unknown]
  - Red blood cell count decreased [Recovering/Resolving]
  - Red cell distribution width increased [Recovering/Resolving]
  - Mean cell volume increased [Recovering/Resolving]
  - Neutrophil count abnormal [Unknown]
  - Product dose omission issue [Unknown]
  - Off label use [Unknown]
